FAERS Safety Report 20999032 (Version 6)
Quarter: 2022Q3

REPORT INFORMATION
  Report Type: Report from Study
  Country: US (occurrence: US)
  Receive Date: 20220623
  Receipt Date: 20220817
  Transmission Date: 20221027
  Serious: Yes (Hospitalization, Other)
  Sender: FDA-Public Use
  Company Number: US-BRISTOL-MYERS SQUIBB COMPANY-2022-051357

PATIENT
  Age: 76 Year
  Sex: Female

DRUGS (8)
  1. LENALIDOMIDE [Suspect]
     Active Substance: LENALIDOMIDE
     Indication: Plasma cell myeloma
     Route: 048
     Dates: start: 20220413, end: 20220526
  2. LENALIDOMIDE [Suspect]
     Active Substance: LENALIDOMIDE
     Route: 048
     Dates: end: 20220527
  3. LENALIDOMIDE [Suspect]
     Active Substance: LENALIDOMIDE
     Route: 048
     Dates: start: 20220607
  4. DEXAMETHASONE [Suspect]
     Active Substance: DEXAMETHASONE
     Indication: Plasma cell myeloma
     Dosage: THE SUBJECT^S MOST RECENT DOSE  RECEIVED PRIOR TO THE SAE ONSET, WAS ON 24-MAY-2022
     Route: 048
     Dates: start: 20220413, end: 20220531
  5. DEXAMETHASONE [Suspect]
     Active Substance: DEXAMETHASONE
     Route: 048
     Dates: start: 20220607
  6. IXAZOMIB [Suspect]
     Active Substance: IXAZOMIB
     Indication: Plasma cell myeloma
     Dosage: THE SUBJECT^S MOST RECENT DOSE  RECEIVED PRIOR TO THE SAE ONSET, WAS ON 24-MAY-2022
     Route: 048
     Dates: start: 20220413
  7. DARATUMUMAB [Suspect]
     Active Substance: DARATUMUMAB
     Indication: Plasma cell myeloma
     Dosage: THE SUBJECT^S MOST RECENT DOSE  RECEIVED PRIOR TO THE SAE ONSET, WAS ON 24-MAY-2022
     Route: 042
     Dates: start: 20220413
  8. MIRALAX [Concomitant]
     Active Substance: POLYETHYLENE GLYCOL 3350
     Indication: Constipation
     Dosage: 8.5 G, ORAL, PRN
     Route: 048
     Dates: start: 20220524, end: 20220525

REACTIONS (1)
  - Ileus [Recovered/Resolved]

NARRATIVE: CASE EVENT DATE: 20220528
